FAERS Safety Report 5068451-2 (Version None)
Quarter: 2006Q3

REPORT INFORMATION
  Report Type: 
  Country: None (occurrence: None)
  Receive Date: 20060802
  Receipt Date: 20051005
  Transmission Date: 20061208
  Serious: Yes (Hospitalization)
  Sender: FDA-Public Use
  Company Number: US-BRISTOL-MYERS SQUIBB COMPANY-13134085

PATIENT
  Age: 83 Year
  Sex: Female
  Weight: 63 kg

DRUGS (2)
  1. COUMADIN [Suspect]
     Dosage: BEGAN A FEW MONTHS AGO
  2. MULTIVITAMIN [Suspect]
     Dosage: BEGAN A SHORT TIME AFTER COUMADIN

REACTIONS (1)
  - INTERNATIONAL NORMALISED RATIO INCREASED [None]
